FAERS Safety Report 6795642-2 (Version None)
Quarter: 2010Q2

REPORT INFORMATION
  Report Type: 
  Country: None (occurrence: None)
  Receive Date: 20100625
  Receipt Date: 20100615
  Transmission Date: 20101027
  Serious: Yes (Hospitalization)
  Sender: FDA-Public Use
  Company Number: JP-MERCK-1005USA00781

PATIENT
  Age: 76 Year
  Sex: Female

DRUGS (8)
  1. HYZAAR [Suspect]
     Indication: HYPERTENSION
     Route: 048
     Dates: start: 20100418, end: 20100418
  2. HYZAAR [Suspect]
     Route: 048
     Dates: start: 20100420, end: 20100420
  3. HYZAAR [Suspect]
     Route: 048
     Dates: start: 20100430, end: 20100430
  4. ADALAT CC [Suspect]
     Indication: HYPERTENSION
     Route: 048
     Dates: start: 20100418, end: 20100420
  5. DIOVAN [Suspect]
     Indication: HYPERTENSION
     Route: 048
  6. MINIPRESS [Suspect]
     Indication: HYPERTENSION
     Route: 048
  7. CALBLOCK [Suspect]
     Indication: HYPERTENSION
     Route: 048
  8. CIPROFLOXACIN HCL [Suspect]
     Indication: PROPHYLAXIS
     Route: 042
     Dates: start: 20100419, end: 20100420

REACTIONS (9)
  - ABDOMINAL PAIN [None]
  - C-REACTIVE PROTEIN INCREASED [None]
  - COLONIC POLYP [None]
  - DIARRHOEA [None]
  - GASTRIC ULCER [None]
  - PYREXIA [None]
  - WHITE BLOOD CELL COUNT DECREASED [None]
  - WHITE BLOOD CELL COUNT INCREASED [None]
  - WRONG DRUG ADMINISTERED [None]
